FAERS Safety Report 5609352-8 (Version None)
Quarter: 2008Q1

REPORT INFORMATION
  Report Type: 
  Country: None (occurrence: None)
  Receive Date: 20080131
  Receipt Date: 20080122
  Transmission Date: 20080703
  Serious: Yes (Death)
  Sender: FDA-Public Use
  Company Number: US-KINGPHARMUSA00001-K200800132

PATIENT

DRUGS (4)
  1. AVINZA [Suspect]
     Route: 048
  2. LORAZEPAM [Suspect]
     Route: 048
  3. ALPRAZOLAM [Suspect]
     Route: 048
  4. MEPERIDINE      /00016301/ [Suspect]
     Route: 048

REACTIONS (1)
  - COMPLETED SUICIDE [None]
